FAERS Safety Report 23969148 (Version 1)
Quarter: 2024Q2

REPORT INFORMATION
  Report Type: Spontaneous
  Country: US (occurrence: US)
  Receive Date: 20240612
  Receipt Date: 20240612
  Transmission Date: 20240715
  Serious: No
  Sender: FDA-Public Use
  Company Number: US-Calliditas-2024CAL00941

PATIENT
  Age: 77 Year
  Sex: Male

DRUGS (1)
  1. TARPEYO [Suspect]
     Active Substance: BUDESONIDE
     Indication: Haematuria
     Route: 048
     Dates: start: 20240420

REACTIONS (2)
  - Peripheral swelling [Unknown]
  - Off label use [Unknown]
